FAERS Safety Report 8801022 (Version 16)
Quarter: 2016Q2

REPORT INFORMATION
  Report Type: Spontaneous
  Country: CA (occurrence: CA)
  Receive Date: 20120920
  Receipt Date: 20160512
  Transmission Date: 20160815
  Serious: Yes (Other)
  Sender: FDA-Public Use
  Company Number: CA-ROCHE-1126245

PATIENT
  Age: 37 Year
  Sex: Female

DRUGS (14)
  1. XOLAIR [Suspect]
     Active Substance: OMALIZUMAB
     Route: 058
     Dates: start: 20141022
  2. SYMBICORT [Concomitant]
     Active Substance: BUDESONIDE\FORMOTEROL FUMARATE DIHYDRATE
  3. SINGULAIR [Concomitant]
     Active Substance: MONTELUKAST SODIUM
  4. XOLAIR [Suspect]
     Active Substance: OMALIZUMAB
     Indication: ASTHMA
     Route: 058
     Dates: start: 20111026
  5. SPIRIVA [Concomitant]
     Active Substance: TIOTROPIUM BROMIDE MONOHYDRATE
  6. TORADOL [Concomitant]
     Active Substance: KETOROLAC TROMETHAMINE
  7. EPIPEN [Concomitant]
     Active Substance: EPINEPHRINE
  8. XOLAIR [Suspect]
     Active Substance: OMALIZUMAB
     Route: 058
     Dates: start: 20160503
  9. XOLAIR [Suspect]
     Active Substance: OMALIZUMAB
     Route: 058
     Dates: start: 20130412
  10. XOLAIR [Suspect]
     Active Substance: OMALIZUMAB
     Route: 058
     Dates: start: 20130909
  11. FLOVENT [Concomitant]
     Active Substance: FLUTICASONE PROPIONATE
  12. VENTOLIN [Concomitant]
     Active Substance: ALBUTEROL SULFATE
     Route: 065
  13. VENTOLIN [Concomitant]
     Active Substance: ALBUTEROL SULFATE
     Dosage: FREQUNCY REDUCED
     Route: 065
  14. XOLAIR [Suspect]
     Active Substance: OMALIZUMAB
     Route: 058
     Dates: start: 20130827

REACTIONS (28)
  - Respiratory failure [Unknown]
  - Tooth abscess [Unknown]
  - Weight fluctuation [Unknown]
  - Lung infection [Unknown]
  - Injection site pain [Unknown]
  - Respiratory fume inhalation disorder [Unknown]
  - Lower respiratory tract infection [Recovering/Resolving]
  - Muscle strain [Unknown]
  - Stress [Unknown]
  - Wheezing [Recovered/Resolved]
  - Abnormal sensation in eye [Unknown]
  - Asthma [Unknown]
  - Fatigue [Unknown]
  - Urinary tract infection [Unknown]
  - Chest discomfort [Unknown]
  - Hypoventilation [Recovering/Resolving]
  - Irritability [Recovering/Resolving]
  - Pleuritic pain [Unknown]
  - Nasal congestion [Unknown]
  - Breast mass [Unknown]
  - Cystitis [Unknown]
  - Lung disorder [Unknown]
  - Chest pain [Unknown]
  - Influenza [Unknown]
  - Dyspnoea [Unknown]
  - Rash [Unknown]
  - Cough [Unknown]
  - Productive cough [Unknown]

NARRATIVE: CASE EVENT DATE: 201111
